FAERS Safety Report 20928890 (Version 4)
Quarter: 2024Q1

REPORT INFORMATION
  Report Type: Spontaneous
  Country: KW (occurrence: KW)
  Receive Date: 20220607
  Receipt Date: 20240223
  Transmission Date: 20240410
  Serious: Yes (Other)
  Sender: FDA-Public Use
  Company Number: KW-SUN PHARMACEUTICAL INDUSTRIES LTD-2022R1-339234

PATIENT
  Age: 13 Year
  Sex: Male

DRUGS (1)
  1. LITHIUM [Suspect]
     Active Substance: LITHIUM
     Indication: Bipolar I disorder
     Dosage: 1000 MILLIGRAM, DAILY (ON 3 DIVIDED DOSES)
     Route: 065

REACTIONS (1)
  - Delusion of parasitosis [Recovering/Resolving]
